FAERS Safety Report 6186396-1 (Version None)
Quarter: 2009Q2

REPORT INFORMATION
  Report Type: 
  Country: None (occurrence: None)
  Receive Date: 20090511
  Receipt Date: 20090505
  Transmission Date: 20091009
  Serious: No
  Sender: FDA-Public Use
  Company Number: US-BAYER-200910223BCC

PATIENT
  Age: 49 Year
  Sex: Female
  Weight: 68 kg

DRUGS (6)
  1. ALEVE (CAPLET) [Suspect]
     Indication: INFLUENZA
     Dosage: TOTAL DAILY DOSE: 1320 MG  UNIT DOSE: 220 MG
     Route: 048
     Dates: start: 20090112, end: 20090119
  2. MUCINEX DM [Concomitant]
  3. LITHIUM CARBONATE [Concomitant]
  4. ZYPREXA [Concomitant]
  5. SEROQUEL [Concomitant]
  6. TRAZODONE HCL [Concomitant]

REACTIONS (2)
  - HEADACHE [None]
  - OPIATES POSITIVE [None]
